FAERS Safety Report 15189164 (Version 1)
Quarter: 2018Q3

REPORT INFORMATION
  Report Type: Spontaneous
  Country: US (occurrence: US)
  Receive Date: 20180724
  Receipt Date: 20180724
  Transmission Date: 20181010
  Serious: No
  Sender: FDA-Public Use
  Company Number: US-GALDERMA-US18019282

PATIENT
  Age: 11 Year
  Sex: Female

DRUGS (6)
  1. PROACTIV MD DEEP CLEANSING FACE WASH [Concomitant]
     Active Substance: COSMETICS
     Indication: ACNE
     Route: 061
     Dates: start: 20180327
  2. PROAIR HFA [Concomitant]
     Active Substance: ALBUTEROL SULFATE
     Indication: PRODUCT USED FOR UNKNOWN INDICATION
  3. PROACTIV MD ADAPALENE ACNE TREATMENT [Suspect]
     Active Substance: ADAPALENE
     Indication: ACNE
     Dosage: 0.1%
     Route: 061
     Dates: start: 20180327
  4. PROACTIV MD DAILY OIL CONTROL SPF 30 [Suspect]
     Active Substance: AVOBENZONE\OCTISALATE\OCTOCRYLENE
     Indication: ACNE
     Route: 061
     Dates: start: 20180327
  5. ALBUTEROL. [Concomitant]
     Active Substance: ALBUTEROL
     Indication: PRODUCT USED FOR UNKNOWN INDICATION
  6. PROVAN INHALER [Concomitant]
     Indication: PRODUCT USED FOR UNKNOWN INDICATION

REACTIONS (8)
  - Dry skin [Not Recovered/Not Resolved]
  - Scab [Not Recovered/Not Resolved]
  - Pruritus [Not Recovered/Not Resolved]
  - Acne [Not Recovered/Not Resolved]
  - Scratch [Not Recovered/Not Resolved]
  - Drug administered to patient of inappropriate age [Recovered/Resolved]
  - Erythema [Not Recovered/Not Resolved]
  - Chemical burn [Not Recovered/Not Resolved]

NARRATIVE: CASE EVENT DATE: 20180327
